FAERS Safety Report 8000695-X (Version None)
Quarter: 2011Q4

REPORT INFORMATION
  Report Type: 
  Country: None (occurrence: None)
  Receive Date: 20111222
  Receipt Date: 20111209
  Transmission Date: 20120403
  Serious: Yes (Other)
  Sender: FDA-Public Use
  Company Number: US-PAR PHARMACEUTICAL, INC-2011SCPR003488

PATIENT

DRUGS (1)
  1. TESTOSTERONE [Suspect]
     Indication: HYPOGONADISM
     Dosage: UNK, UNKNOWN
     Route: 030

REACTIONS (1)
  - HAEMANGIOMA [None]
